FAERS Safety Report 4761882-7 (Version None)
Quarter: 2005Q3

REPORT INFORMATION
  Report Type: 
  Country: None (occurrence: None)
  Receive Date: 20050906
  Receipt Date: 20050704
  Transmission Date: 20060218
  Serious: Yes (Other)
  Sender: FDA-Public Use
  Company Number: 200516419US

PATIENT
  Sex: Female
  Weight: 51 kg

DRUGS (9)
  1. LANTUS [Suspect]
     Indication: DIABETES MELLITUS INSULIN-DEPENDENT
     Dosage: DOSE UNIT: UNITS
     Route: 058
  2. OPTICLIK (INSULIN INJECTION PEN) [Suspect]
     Dosage: DOSE: UNKNOWN
     Dates: start: 20050101
  3. NOVOLOG [Concomitant]
     Dosage: DOSE: NOT PROVIDED
  4. ASPIRIN [Concomitant]
     Dosage: DOSE: NOT PROVIDED
  5. MULTIVITAMINS, PLAIN [Concomitant]
     Dosage: DOSE: NOT PROVIDED
  6. COZAAR [Concomitant]
     Dosage: DOSE: NOT PROVIDED
  7. DIURETICS [Concomitant]
     Dosage: DOSE: NOT PROVIDED
  8. ZOCOR [Concomitant]
     Dosage: DOSE: NOT PROVIDED
  9. DARVOCET-N 100 [Concomitant]
     Dosage: DOSE: NOT PROVIDED

REACTIONS (3)
  - BLOOD GLUCOSE INCREASED [None]
  - CHOLELITHIASIS [None]
  - NAUSEA [None]
